FAERS Safety Report 20485321 (Version 1)
Quarter: 2022Q1

REPORT INFORMATION
  Report Type: Spontaneous
  Country: US (occurrence: None)
  Receive Date: 20220217
  Receipt Date: 20220217
  Transmission Date: 20220423
  Serious: Yes (Other)
  Sender: FDA-Public Use
  Company Number: 2022A066704

PATIENT
  Sex: Male
  Weight: 59 kg

DRUGS (1)
  1. BUDESONIDE\FORMOTEROL FUMARATE DIHYDRATE [Suspect]
     Active Substance: BUDESONIDE\FORMOTEROL FUMARATE DIHYDRATE
     Indication: Chronic obstructive pulmonary disease
     Dosage: 80/4.5 MCG 1 PUFF TWICE DAILY
     Route: 055
     Dates: start: 2019

REACTIONS (8)
  - Intellectual disability [Unknown]
  - Feeling abnormal [Unknown]
  - Asthenia [Unknown]
  - Product use issue [Unknown]
  - Intentional product misuse [Unknown]
  - Device malfunction [Unknown]
  - Underdose [Unknown]
  - Device leakage [Unknown]
